FAERS Safety Report 5849815-3 (Version None)
Quarter: 2008Q3

REPORT INFORMATION
  Report Type: 
  Country: None (occurrence: None)
  Receive Date: 20080819
  Receipt Date: 20080808
  Transmission Date: 20090109
  Serious: Yes (Other)
  Sender: FDA-Public Use
  Company Number: US-ASTRAZENECA-2008UW16301

PATIENT
  Sex: Female

DRUGS (7)
  1. ZOMIG [Suspect]
     Indication: MIGRAINE
     Dosage: ZOMIG 2 TABLETS EVERY DAY (PATIENT FIRST SAID 5 MG BUT THEN THOUGHT IT MIGHT BE 2.5 MG)
     Route: 048
  2. ALBUTEROL [Concomitant]
  3. TAGAMET [Concomitant]
  4. XANAX [Concomitant]
  5. ZOMIT [Concomitant]
  6. METOPROLOL SUCCINATE [Concomitant]
  7. TOPROL-XL [Concomitant]
     Route: 048

REACTIONS (3)
  - BREAST CANCER [None]
  - BREAST CANCER FEMALE [None]
  - SURGERY [None]
